FAERS Safety Report 11745307 (Version 14)
Quarter: 2017Q3

REPORT INFORMATION
  Report Type: Report from Study
  Country: GB (occurrence: GB)
  Receive Date: 20151117
  Receipt Date: 20170928
  Transmission Date: 20171127
  Serious: Yes (Hospitalization, Other)
  Sender: FDA-Public Use
  Company Number: GB-ROCHE-ITM201505IM015503

PATIENT
  Age: 69 Year
  Sex: Male

DRUGS (4)
  1. FLU VACCINE [Concomitant]
     Active Substance: INFLUENZA VIRUS VACCINE
  2. MST (GERMANY) [Concomitant]
  3. ESBRIET [Suspect]
     Active Substance: PIRFENIDONE
     Indication: IDIOPATHIC PULMONARY FIBROSIS
     Route: 048
     Dates: start: 20120229
  4. LANSOPRAZOLE. [Concomitant]
     Active Substance: LANSOPRAZOLE

REACTIONS (24)
  - Heart rate irregular [Unknown]
  - Deafness [Unknown]
  - Dyspnoea [Not Recovered/Not Resolved]
  - Forced vital capacity decreased [Not Recovered/Not Resolved]
  - Chest pain [Not Recovered/Not Resolved]
  - Vision blurred [Unknown]
  - Cough [Not Recovered/Not Resolved]
  - Lower respiratory tract infection [Unknown]
  - Oxygen saturation decreased [Recovered/Resolved]
  - Fall [Unknown]
  - Middle insomnia [Not Recovered/Not Resolved]
  - Pneumonia [Unknown]
  - Rash [Not Recovered/Not Resolved]
  - Skin irritation [Unknown]
  - Pain in extremity [Not Recovered/Not Resolved]
  - Dyspepsia [Unknown]
  - Peak expiratory flow rate [Not Recovered/Not Resolved]
  - Cardiac murmur [Unknown]
  - Dyspnoea [Unknown]
  - Gastrooesophageal reflux disease [Not Recovered/Not Resolved]
  - Vertigo [Unknown]
  - Hypoxia [Unknown]
  - Nasopharyngitis [Not Recovered/Not Resolved]
  - Dizziness [Unknown]

NARRATIVE: CASE EVENT DATE: 201607
